FAERS Safety Report 11270017 (Version 2)
Quarter: 2015Q3

REPORT INFORMATION
  Report Type: Spontaneous
  Country: FI (occurrence: FI)
  Receive Date: 20150714
  Receipt Date: 20150902
  Transmission Date: 20151125
  Serious: Yes (Life-Threatening, Other)
  Sender: FDA-Public Use
  Company Number: FI-GLAXOSMITHKLINE-FI2015GSK099523

PATIENT
  Age: 65 Year
  Sex: Male

DRUGS (2)
  1. ZINACEF [Suspect]
     Active Substance: CEFUROXIME SODIUM
     Dosage: 1.5 UNK, UNK
     Route: 042
  2. ZINACEF [Suspect]
     Active Substance: CEFUROXIME SODIUM
     Indication: ARTHRITIS BACTERIAL
     Dosage: 1.5 G, UNK
     Route: 042

REACTIONS (4)
  - Conduction disorder [Unknown]
  - Feeling abnormal [Unknown]
  - Disorientation [Unknown]
  - Anaphylactic reaction [Unknown]

NARRATIVE: CASE EVENT DATE: 20150611
